FAERS Safety Report 5571430-X (Version None)
Quarter: 2007Q4

REPORT INFORMATION
  Report Type: 
  Country: None (occurrence: None)
  Receive Date: 20071221
  Receipt Date: 20071025
  Transmission Date: 20080405
  Serious: No
  Sender: FDA-Public Use
  Company Number: A0689818A

PATIENT
  Sex: Female

DRUGS (6)
  1. AVANDARYL [Suspect]
     Route: 048
     Dates: start: 20030101
  2. PROTONIX [Concomitant]
  3. MULTI-VITAMIN [Concomitant]
  4. METFORMIN HCL [Concomitant]
  5. HYDROCHLOROTHIAZIDE [Concomitant]
  6. TYLENOL [Concomitant]

REACTIONS (5)
  - ANOREXIA [None]
  - BACK PAIN [None]
  - DIZZINESS [None]
  - FATIGUE [None]
  - WEIGHT INCREASED [None]
